FAERS Safety Report 20759230 (Version 1)
Quarter: 2022Q2

REPORT INFORMATION
  Report Type: Spontaneous
  Country: US (occurrence: US)
  Receive Date: 20220427
  Receipt Date: 20220427
  Transmission Date: 20220721
  Serious: No
  Sender: FDA-Public Use
  Company Number: US-BioHaven Pharmaceuticals-2022BHV000103

PATIENT
  Age: 42 Year
  Sex: Female

DRUGS (1)
  1. NURTEC ODT [Suspect]
     Active Substance: RIMEGEPANT SULFATE
     Indication: Migraine
     Dosage: THE PRESCRIPTION WAS WRITTEN ON 01-NOV-2021, AND THE PATIENT FILLED THE PRESCRIPTION ON 06-DEC-2021.
     Route: 048
     Dates: start: 20211101, end: 20220105

REACTIONS (1)
  - Alopecia [Unknown]
